FAERS Safety Report 23647594 (Version 2)
Quarter: 2025Q1

REPORT INFORMATION
  Report Type: Spontaneous
  Country: US (occurrence: US)
  Receive Date: 20240319
  Receipt Date: 20250324
  Transmission Date: 20250408
  Serious: No
  Sender: SANOFI AVENTIS
  Company Number: US-SA-SAC20240314001293

PATIENT
  Age: 68 Year
  Sex: Female

DRUGS (1)
  1. KEVZARA [Suspect]
     Active Substance: SARILUMAB
     Indication: Polymyalgia rheumatica
     Dosage: 200 MG, QOW
     Route: 058
     Dates: end: 20240311

REACTIONS (2)
  - SARS-CoV-2 test positive [Not Recovered/Not Resolved]
  - Trigger finger [Unknown]

NARRATIVE: CASE EVENT DATE: 20240308
